FAERS Safety Report 8165153-0 (Version None)
Quarter: 2012Q1

REPORT INFORMATION
  Report Type: 
  Country: None (occurrence: None)
  Receive Date: 20120227
  Receipt Date: 20120220
  Transmission Date: 20120608
  Serious: Yes (Life-Threatening)
  Sender: FDA-Public Use
  Company Number: US-PFIZER INC-2012045377

PATIENT
  Sex: Female
  Weight: 86.621 kg

DRUGS (8)
  1. SPIRIVA [Concomitant]
     Indication: CHRONIC OBSTRUCTIVE PULMONARY DISEASE
     Dosage: UNK, DAILY
  2. VENTOLIN [Concomitant]
     Indication: CHRONIC OBSTRUCTIVE PULMONARY DISEASE
     Dosage: UNK, AS NEEDED
  3. DEMEROL [Concomitant]
     Indication: MIGRAINE
     Dosage: OCCASIONALLY
  4. NORCO [Concomitant]
     Indication: JOINT INJURY
     Dosage: 10 MG 4 TO 8 TIMES PER DAY, AS NEEDED
  5. CRESTOR [Concomitant]
     Indication: BLOOD CHOLESTEROL ABNORMAL
     Dosage: 40 MG, DAILY
  6. PROPRANOLOL HCL [Suspect]
     Dosage: 20 MG, 2X/DAY
     Dates: start: 20120201, end: 20120201
  7. ADVAIR DISKUS 100/50 [Concomitant]
     Indication: CHRONIC OBSTRUCTIVE PULMONARY DISEASE
     Dosage: UNK, 2X/DAY
  8. XANAX [Concomitant]
     Dosage: 1-2 MG, AS NEEDED

REACTIONS (1)
  - DYSPNOEA [None]
